FAERS Safety Report 9156152 (Version 1)
Quarter: 2013Q1

REPORT INFORMATION
  Report Type: Report from Study
  Country: US (occurrence: US)
  Receive Date: 20130311
  Receipt Date: 20130311
  Transmission Date: 20140127
  Serious: Yes (Hospitalization)
  Sender: FDA-Public Use
  Company Number: US-US-EMD SERONO, INC.-7197744

PATIENT
  Age: 16 Year
  Sex: Female

DRUGS (1)
  1. REBIF [Suspect]
     Indication: PRODUCT USED FOR UNKNOWN INDICATION
     Route: 058
     Dates: start: 20111119

REACTIONS (4)
  - Central nervous system lesion [Unknown]
  - Lethargy [Unknown]
  - Aphasia [Unknown]
  - Inappropriate schedule of drug administration [Unknown]
